FAERS Safety Report 22012112 (Version 1)
Quarter: 2023Q1

REPORT INFORMATION
  Report Type: Spontaneous
  Country: CN (occurrence: CN)
  Receive Date: 20230220
  Receipt Date: 20230220
  Transmission Date: 20230418
  Serious: Yes (Hospitalization, Other)
  Sender: FDA-Public Use
  Company Number: None

PATIENT
  Age: 15 Year
  Sex: Male
  Weight: 38 kg

DRUGS (6)
  1. CYCLOPHOSPHAMIDE [Suspect]
     Active Substance: CYCLOPHOSPHAMIDE
     Indication: Rhabdomyosarcoma
     Dosage: 1.2 G, QD, DILUTE WITH (4:1) GLUCOSE AND SODIUM CHLORIDE (500 ML)
     Route: 041
     Dates: start: 20221214, end: 20230215
  2. SODIUM CHLORIDE [Suspect]
     Active Substance: SODIUM CHLORIDE
     Indication: Medication dilution
     Dosage: 50 ML, QD, USED TO DILUTE VINDESINE SULFATE (3 MG), DOSAGE FORM: INJECTION, CONCENTRATION: 0.9%
     Route: 041
     Dates: start: 20221214, end: 20221215
  3. SODIUM CHLORIDE [Suspect]
     Active Substance: SODIUM CHLORIDE
     Dosage: 250 ML, QD, USED TO DILUTE EPIRUBICIN HYDROCHLORIDE (25 MG), DOSAGE FORM: INJECTION, CONCENTRATION:
     Route: 041
     Dates: start: 20221214, end: 20221215
  4. DEXTROSE\SODIUM CHLORIDE [Suspect]
     Active Substance: DEXTROSE\SODIUM CHLORIDE
     Indication: Medication dilution
     Dosage: 500 ML, QD, USED TO DILUTE CYCLOPHOSPHAMIDE (1.2 G), DOSAGE FORM: INJECTION, RATIO: 4:1
     Route: 041
     Dates: start: 20221214, end: 20221215
  5. EPIRUBICIN [Suspect]
     Active Substance: EPIRUBICIN
     Indication: Rhabdomyosarcoma
     Dosage: 25 MG, QD, DILUTED WITH 0.9% SODIUM CHLORIDE (250 ML)
     Route: 041
     Dates: start: 20221214, end: 20221215
  6. VINDESINE SULFATE [Suspect]
     Active Substance: VINDESINE SULFATE
     Indication: Rhabdomyosarcoma
     Dosage: 3 MG, QD, DILUTED WITH 0.9% SODIUM CHLORIDE (50 ML)
     Route: 041
     Dates: start: 20221214, end: 20221215

REACTIONS (1)
  - Myelosuppression [Recovering/Resolving]

NARRATIVE: CASE EVENT DATE: 20221221
